FAERS Safety Report 8545835-9 (Version None)
Quarter: 2012Q3

REPORT INFORMATION
  Report Type: 
  Country: None (occurrence: None)
  Receive Date: 20120727
  Receipt Date: 20120220
  Transmission Date: 20120928
  Serious: No
  Sender: FDA-Public Use
  Company Number: US-ASTRAZENECA-2011SE68611

PATIENT
  Age: 91 Year
  Sex: Female
  Weight: 77.1 kg

DRUGS (2)
  1. SEROQUEL [Suspect]
     Indication: ABNORMAL BEHAVIOUR
     Route: 048
  2. SEROQUEL [Suspect]
     Dosage: HALF TABLET IN THE MORNING AND TWO TABLETS IN THE NIGHT
     Route: 048

REACTIONS (4)
  - AMNESIA [None]
  - DECUBITUS ULCER [None]
  - OFF LABEL USE [None]
  - DEMENTIA [None]
